FAERS Safety Report 23196989 (Version 1)
Quarter: 2023Q4

REPORT INFORMATION
  Report Type: Spontaneous
  Country: US (occurrence: US)
  Receive Date: 20231117
  Receipt Date: 20231117
  Transmission Date: 20240110
  Serious: Yes (Life-Threatening, Hospitalization)
  Sender: FDA-Public Use
  Company Number: US-MYLANLABS-2023M1123213

PATIENT
  Age: 69 Year
  Sex: Female

DRUGS (1)
  1. VENLAFAXINE [Suspect]
     Active Substance: VENLAFAXINE HYDROCHLORIDE
     Indication: Depression
     Dosage: UNK, ORAL INGESTION OF UNKNOWN QUANTITIES OF VENLAFAXINE
     Route: 048

REACTIONS (4)
  - Generalised tonic-clonic seizure [Unknown]
  - Overdose [Unknown]
  - Metabolic acidosis [Unknown]
  - Cardiotoxicity [Unknown]
